FAERS Safety Report 5637584-1 (Version None)
Quarter: 2008Q1

REPORT INFORMATION
  Report Type: 
  Country: None (occurrence: None)
  Receive Date: 20080225
  Receipt Date: 20080213
  Transmission Date: 20080703
  Serious: Yes (Other)
  Sender: FDA-Public Use
  Company Number: US-PFIZER INC-2008016140

PATIENT
  Sex: Male

DRUGS (2)
  1. CHANTIX [Suspect]
  2. DRUG, UNSPECIFIED [Suspect]

REACTIONS (5)
  - ABASIA [None]
  - DIZZINESS [None]
  - DYSSTASIA [None]
  - VERTIGO [None]
  - VOMITING [None]
